FAERS Safety Report 8559194-9 (Version None)
Quarter: 2012Q3

REPORT INFORMATION
  Report Type: 
  Country: None (occurrence: None)
  Receive Date: 20120720
  Receipt Date: 20120711
  Transmission Date: 20120928
  Serious: Yes (Other)
  Sender: FDA-Public Use
  Company Number: 2012SA048270

PATIENT
  Age: 60 Year
  Sex: Female

DRUGS (1)
  1. ICY HOT BACK PATCH / UNKNOWN / UNKNOWN [Suspect]
     Dosage: 1 UNIT(S); ONCE; SUBCUTANEOUS
     Route: 058
     Dates: start: 20120601, end: 20120601

REACTIONS (3)
  - APPLICATION SITE RASH [None]
  - APPLICATION SITE VESICLES [None]
  - CHEMICAL INJURY [None]
